FAERS Safety Report 8954069 (Version 1)
Quarter: 2012Q4

REPORT INFORMATION
  Report Type: 
  Country: DE (occurrence: DE)
  Receive Date: 20121207
  Receipt Date: 20121207
  Transmission Date: 20130627
  Serious: Yes (Other)
  Sender: FDA-Public Use
  Company Number: GXKR2012DE003548

PATIENT
  Age: 48 Year
  Sex: Female

DRUGS (1)
  1. MTX [Suspect]
     Indication: PSORIASIS
     Dosage: 7.5 mg, QW
     Route: 048
     Dates: start: 20121016, end: 20121126

REACTIONS (2)
  - VIIth nerve paralysis [Recovered/Resolved]
  - Dysgeusia [Unknown]
